FAERS Safety Report 10753858 (Version 1)
Quarter: 2015Q1

REPORT INFORMATION
  Report Type: Spontaneous
  Country: US (occurrence: None)
  Receive Date: 20150129
  Receipt Date: 20150129
  Transmission Date: 20150721
  Serious: Yes (Other)
  Sender: FDA-Public Use
  Company Number: US-H14001-15-00135

PATIENT
  Sex: Male

DRUGS (1)
  1. MORGIDOX [Suspect]
     Active Substance: DOXYCYCLINE HYCLATE
     Indication: LYME DISEASE
     Dosage: 200 MG (100 MG, 1 IN 12 HR), ORAL
     Route: 048
     Dates: start: 20141222

REACTIONS (4)
  - Malaise [None]
  - Confusional state [None]
  - Feeling abnormal [None]
  - Arthralgia [None]
